FAERS Safety Report 18536272 (Version 1)
Quarter: 2020Q4

REPORT INFORMATION
  Report Type: Spontaneous
  Country: JP (occurrence: JP)
  Receive Date: 20201124
  Receipt Date: 20201124
  Transmission Date: 20210114
  Serious: Yes (Other)
  Sender: FDA-Public Use
  Company Number: JP-ROCHE-2718064

PATIENT
  Age: 79 Year
  Sex: Female

DRUGS (3)
  1. BONVIVA [Suspect]
     Active Substance: IBANDRONATE SODIUM
     Indication: OSTEOPOROSIS POSTMENOPAUSAL
     Route: 048
     Dates: start: 20170915, end: 20180913
  2. CALONAL [Concomitant]
     Active Substance: ACETAMINOPHEN
     Dates: start: 20170818, end: 20171011
  3. EDIROL [Concomitant]
     Active Substance: ELDECALCITOL
     Dates: start: 20170901

REACTIONS (2)
  - Foot fracture [Recovering/Resolving]
  - Muscle spasms [Recovering/Resolving]

NARRATIVE: CASE EVENT DATE: 20200319
